FAERS Safety Report 8191863-5 (Version None)
Quarter: 2012Q1

REPORT INFORMATION
  Report Type: 
  Country: None (occurrence: None)
  Receive Date: 20120307
  Receipt Date: 20120229
  Transmission Date: 20120608
  Serious: Yes (Other)
  Sender: FDA-Public Use
  Company Number: PHHY2011CA63599

PATIENT
  Sex: Female

DRUGS (1)
  1. SANDOSTATIN LAR [Suspect]
     Indication: ACROMEGALY
     Dosage: 20 MG, EVERY 4 WEEKS
     Route: 030
     Dates: start: 20110610

REACTIONS (6)
  - DIARRHOEA [None]
  - INJECTION SITE MASS [None]
  - HEADACHE [None]
  - BLOOD PRESSURE INCREASED [None]
  - INJECTION SITE HAEMORRHAGE [None]
  - NAUSEA [None]
